FAERS Safety Report 14202492 (Version 2)
Quarter: 2018Q3

REPORT INFORMATION
  Report Type: Spontaneous
  Country: US (occurrence: US)
  Receive Date: 20171117
  Receipt Date: 20180717
  Transmission Date: 20181010
  Serious: No
  Sender: FDA-Public Use
  Company Number: US-BAUSCH-BL-2017-027915

PATIENT
  Age: 65 Year
  Sex: Female
  Weight: 90.8 kg

DRUGS (4)
  1. XIFAXAN [Suspect]
     Active Substance: RIFAXIMIN
     Indication: HEPATIC ENCEPHALOPATHY
     Dosage: TAKING FOR THREE YEARS
     Route: 065
     Dates: end: 201709
  2. XIFAXAN [Suspect]
     Active Substance: RIFAXIMIN
     Indication: LIVER DISORDER
     Dosage: CUTTING IN HALF PROBABLY TWO WEEKS AGO
     Route: 065
     Dates: start: 201709, end: 20170915
  3. XIFAXAN [Suspect]
     Active Substance: RIFAXIMIN
     Indication: HEPATIC CIRRHOSIS
  4. LACTULOSE. [Suspect]
     Active Substance: LACTULOSE
     Indication: CHRONIC HEPATIC FAILURE
     Route: 065

REACTIONS (9)
  - Stress [Not Recovered/Not Resolved]
  - Ammonia increased [Unknown]
  - Diarrhoea [Recovered/Resolved]
  - Treatment noncompliance [Unknown]
  - Wrong technique in product usage process [Unknown]
  - Hallucination [Not Recovered/Not Resolved]
  - Abnormal dreams [Not Recovered/Not Resolved]
  - Depression [Not Recovered/Not Resolved]
  - Drug dose omission [Unknown]

NARRATIVE: CASE EVENT DATE: 201709
